FAERS Safety Report 19898811 (Version 1)
Quarter: 2021Q3

REPORT INFORMATION
  Report Type: Spontaneous
  Country: GB (occurrence: GB)
  Receive Date: 20210930
  Receipt Date: 20210930
  Transmission Date: 20211014
  Serious: Yes (Other)
  Sender: FDA-Public Use
  Company Number: GB-ORGANON-O2109GBR002023

PATIENT
  Age: 45 Year
  Sex: Female
  Weight: 79 kg

DRUGS (4)
  1. MONTELUKAST SODIUM. [Concomitant]
     Active Substance: MONTELUKAST SODIUM
     Dosage: ONE TO BE TAKEN AT NIGHT
     Dates: start: 20210817
  2. OMEPRAZOLE. [Concomitant]
     Active Substance: OMEPRAZOLE
     Dosage: ONE TO BE TAKEN EACH DAY
     Dates: start: 20210906
  3. ASTRAZENECA COVID?19 VACCINE [Concomitant]
     Active Substance: AZD-1222
     Dosage: 1 DOSE BY INTRAMUSCULAR INJECTION
     Route: 030
     Dates: start: 20210620
  4. MONTELUKAST SODIUM. [Suspect]
     Active Substance: MONTELUKAST SODIUM
     Dosage: ONE TO BE TAKEN AT NIGHT
     Dates: start: 20210817

REACTIONS (1)
  - Adverse drug reaction [Recovered/Resolved]
